FAERS Safety Report 12484864 (Version 1)
Quarter: 2016Q2

REPORT INFORMATION
  Report Type: Spontaneous
  Country: US (occurrence: US)
  Receive Date: 20160621
  Receipt Date: 20160621
  Transmission Date: 20160815
  Serious: Yes (Other)
  Sender: FDA-Public Use
  Company Number: US-BAYER-2016-117413

PATIENT
  Age: 51 Year
  Sex: Female

DRUGS (10)
  1. REMODULIN [Suspect]
     Active Substance: TREPROSTINIL
     Indication: PULMONARY ARTERIAL HYPERTENSION
     Dosage: 108 NG, QD
     Route: 065
  2. ADEMPAS [Suspect]
     Active Substance: RIOCIGUAT
     Indication: PULMONARY ARTERIAL HYPERTENSION
     Dosage: 1.5 MG, TID
     Route: 065
     Dates: end: 20160527
  3. ADCIRCA [Concomitant]
     Active Substance: TADALAFIL
  4. POTASSIUM [Concomitant]
     Active Substance: POTASSIUM
  5. ASPIRIN. [Concomitant]
     Active Substance: ASPIRIN
  6. GABAPENTIN. [Concomitant]
     Active Substance: GABAPENTIN
  7. AMBRISENTAN [Suspect]
     Active Substance: AMBRISENTAN
     Indication: PULMONARY ARTERIAL HYPERTENSION
     Dosage: 10 MG, QD
     Route: 065
     Dates: start: 20120815
  8. WARFARIN [Concomitant]
     Active Substance: WARFARIN
  9. TORASEMIDE [Concomitant]
     Active Substance: TORSEMIDE
  10. NORETHINDRONE. [Concomitant]
     Active Substance: NORETHINDRONE

REACTIONS (4)
  - Fluid retention [Not Recovered/Not Resolved]
  - Weight increased [Not Recovered/Not Resolved]
  - Nocturnal dyspnoea [None]
  - Peripheral swelling [Unknown]

NARRATIVE: CASE EVENT DATE: 20160323
